FAERS Safety Report 8371169-1 (Version None)
Quarter: 2012Q1

REPORT INFORMATION
  Report Type: 
  Country: None (occurrence: None)
  Receive Date: 20120323
  Receipt Date: 20101223
  Transmission Date: 20120608
  Serious: Yes (Death, Other)
  Sender: FDA-Public Use
  Company Number: 163-21880-10110551

PATIENT
  Age: 74 Year
  Sex: Male

DRUGS (13)
  1. FUROSEMIDE [Concomitant]
  2. REVLIMID [Suspect]
     Indication: AMYLOIDOSIS
     Dosage: 25 MG, DAILY X 21 DAYS, PO
     Route: 048
     Dates: start: 20100820, end: 20101028
  3. DEXAMETHASONE [Concomitant]
  4. ALBUTEROL [Concomitant]
  5. DOXYCYCLINE [Concomitant]
  6. LORAZEPAM [Concomitant]
  7. NYSTATIN [Concomitant]
  8. ADVAIR DISKUS 100/50 [Concomitant]
  9. CODEINE-GUAIFENESIN (CHERACOL / USA) [Concomitant]
  10. REVLIMID [Suspect]
  11. BACLOFEN [Concomitant]
  12. PROCHLOPERAZINE (PROCHLORPERAZINE) [Concomitant]
  13. VIAGRA [Concomitant]

REACTIONS (3)
  - AMYLOIDOSIS [None]
  - CARDIAC FAILURE [None]
  - DISEASE PROGRESSION [None]
